FAERS Safety Report 6078484-5 (Version None)
Quarter: 2009Q1

REPORT INFORMATION
  Report Type: 
  Country: None (occurrence: None)
  Receive Date: 20090211
  Receipt Date: 20090211
  Transmission Date: 20090719
  Serious: Yes (Other)
  Sender: FDA-Public Use
  Company Number: None

PATIENT
  Sex: Male
  Weight: 102.0593 kg

DRUGS (2)
  1. DILAUDID [Suspect]
     Indication: BACK PAIN
     Dosage: 4 MG PRN SEVERE PAIN ORAL
     Route: 048
  2. DILAUDID [Suspect]
     Indication: NECK PAIN
     Dosage: 4 MG PRN SEVERE PAIN ORAL
     Route: 048

REACTIONS (3)
  - INADEQUATE ANALGESIA [None]
  - INSOMNIA [None]
  - PRODUCT QUALITY ISSUE [None]
